FAERS Safety Report 14117603 (Version 1)
Quarter: 2017Q4

REPORT INFORMATION
  Report Type: Spontaneous
  Country: US (occurrence: US)
  Receive Date: 20171023
  Receipt Date: 20171023
  Transmission Date: 20180321
  Serious: No
  Sender: FDA-Public Use
  Company Number: US-ABBVIE-17P-163-1922727-00

PATIENT
  Sex: Female

DRUGS (1)
  1. LUPRON DEPOT [Suspect]
     Active Substance: LEUPROLIDE ACETATE
     Indication: PRODUCT USED FOR UNKNOWN INDICATION
     Route: 050

REACTIONS (7)
  - Hot flush [Unknown]
  - Multiple fractures [Unknown]
  - Pain [Unknown]
  - Hormone level abnormal [Unknown]
  - Drug ineffective [Unknown]
  - Endometriosis [Unknown]
  - Infusion related reaction [Unknown]
